FAERS Safety Report 25617759 (Version 2)
Quarter: 2025Q3

REPORT INFORMATION
  Report Type: Spontaneous
  Country: US (occurrence: US)
  Receive Date: 20250729
  Receipt Date: 20250812
  Transmission Date: 20251020
  Serious: Yes (Death)
  Sender: LABORATOIRES SERB
  Company Number: US-SERB S.A.S.-2181428

PATIENT
  Age: 57 Year
  Sex: Male

DRUGS (3)
  1. CYANOKIT [Suspect]
     Active Substance: HYDROXOCOBALAMIN
     Indication: Distributive shock
  2. ALBUMIN (HUMAN) [Concomitant]
     Active Substance: ALBUMIN HUMAN
  3. METHYLENE BLUE [Concomitant]
     Active Substance: METHYLENE BLUE

REACTIONS (6)
  - Pulseless electrical activity [Fatal]
  - Drug ineffective for unapproved indication [Unknown]
  - Product use in unapproved indication [Unknown]
  - Metabolic acidosis [Unknown]
  - Renal failure [Unknown]
  - Compartment syndrome [Unknown]
